FAERS Safety Report 15430904 (Version 1)
Quarter: 2018Q3

REPORT INFORMATION
  Report Type: Spontaneous
  Country: US (occurrence: US)
  Receive Date: 20180926
  Receipt Date: 20180926
  Transmission Date: 20181010
  Serious: No
  Sender: FDA-Public Use
  Company Number: US-INDIVIOR LIMITED-INDV-110861-2018

PATIENT
  Age: 37 Year
  Sex: Male

DRUGS (2)
  1. SUBOXONE [Suspect]
     Active Substance: BUPRENORPHINE HYDROCHLORIDE\NALOXONE HYDROCHLORIDE
     Indication: DRUG DEPENDENCE
     Dosage: 8 MG, BID (ONE FILM IN THE MORNING AND ONE FILM IN THE NIGHT)
     Route: 060
  2. SUBOXONE [Suspect]
     Active Substance: BUPRENORPHINE HYDROCHLORIDE\NALOXONE HYDROCHLORIDE
     Dosage: 8 MG, CUTTING AND TAKING HALF OF 8 MG FILM (4 MG) IN MORNING AND OTHER HALF AT NIGHT
     Route: 060

REACTIONS (6)
  - Wrong technique in product usage process [Unknown]
  - Dizziness [Unknown]
  - Adverse event [Unknown]
  - Intentional underdose [Unknown]
  - Inappropriate schedule of drug administration [Unknown]
  - Vomiting [Unknown]
